FAERS Safety Report 5256170-9 (Version None)
Quarter: 2007Q1

REPORT INFORMATION
  Report Type: 
  Country: None (occurrence: None)
  Receive Date: 20070302
  Receipt Date: 20070302
  Transmission Date: 20070707
  Serious: No
  Sender: FDA-Public Use
  Company Number: None

PATIENT
  Age: 65 Year
  Sex: Male
  Weight: 95.2554 kg

DRUGS (2)
  1. DOXAZOSIN MESYLATE [Suspect]
     Indication: NOCTURIA
     Dosage: 1 MG Q HS PO
     Route: 048
     Dates: start: 20061201, end: 20061204
  2. DOXAZOSIN MESYLATE [Suspect]
     Indication: NOCTURIA
     Dosage: 1 MG Q HS PO
     Route: 048
     Dates: start: 20061227, end: 20061229

REACTIONS (3)
  - BLINDNESS TRANSIENT [None]
  - OPTIC ISCHAEMIC NEUROPATHY [None]
  - VISUAL FIELD DEFECT [None]
